FAERS Safety Report 4862082-2 (Version None)
Quarter: 2005Q4

REPORT INFORMATION
  Report Type: 
  Country: None (occurrence: None)
  Receive Date: 20051130
  Receipt Date: 20041223
  Transmission Date: 20060501
  Serious: Yes (Other)
  Sender: FDA-Public Use
  Company Number: PHEH2004US12414

PATIENT
  Age: 60 Year
  Sex: Male

DRUGS (1)
  1. LAMISIL [Suspect]
     Indication: NAIL TINEA
     Dosage: 250 MG, QD, ORAL
     Route: 048
     Dates: start: 20040601, end: 20040701

REACTIONS (5)
  - ANTINUCLEAR ANTIBODY POSITIVE [None]
  - CUTANEOUS LUPUS ERYTHEMATOSUS [None]
  - DERMATITIS [None]
  - PHOTOSENSITIVITY REACTION [None]
  - RASH [None]
